FAERS Safety Report 12161680 (Version 1)
Quarter: 2016Q1

REPORT INFORMATION
  Report Type: Spontaneous
  Country: US (occurrence: US)
  Receive Date: 20160309
  Receipt Date: 20160309
  Transmission Date: 20160526
  Serious: Yes (Other)
  Sender: FDA-Public Use
  Company Number: US-BEH-2016059452

PATIENT
  Age: 83 Year
  Sex: Male
  Weight: 70 kg

DRUGS (29)
  1. COZAAR [Concomitant]
     Active Substance: LOSARTAN POTASSIUM
  2. ACETAMINOPHEN. [Concomitant]
     Active Substance: ACETAMINOPHEN
  3. DIPHENHYDRAMINE. [Concomitant]
     Active Substance: DIPHENHYDRAMINE
  4. PRILOSEC [Concomitant]
     Active Substance: OMEPRAZOLE MAGNESIUM
  5. VITAMIN C [Concomitant]
     Active Substance: ASCORBIC ACID
  6. NAPROXEN. [Concomitant]
     Active Substance: NAPROXEN
  7. FLUOCINONIDE. [Concomitant]
     Active Substance: FLUOCINONIDE
  8. EPIPEN [Concomitant]
     Active Substance: EPINEPHRINE
  9. FORTEO [Concomitant]
     Active Substance: TERIPARATIDE
  10. FOLIC ACID. [Concomitant]
     Active Substance: FOLIC ACID
  11. SPIRIVA [Concomitant]
     Active Substance: TIOTROPIUM BROMIDE MONOHYDRATE
  12. GABAPENTIN. [Concomitant]
     Active Substance: GABAPENTIN
  13. HYDROCODONE BITARTRATE AND ACETAMINOPHEN [Concomitant]
     Active Substance: ACETAMINOPHEN\HYDROCODONE BITARTRATE
  14. MULTIVITAMINS [Concomitant]
     Active Substance: VITAMINS
  15. MUCINEX [Concomitant]
     Active Substance: GUAIFENESIN
  16. IMURAN [Concomitant]
     Active Substance: AZATHIOPRINE
  17. AMLODIPINE [Concomitant]
     Active Substance: AMLODIPINE BESYLATE
  18. SINGULAIR [Concomitant]
     Active Substance: MONTELUKAST SODIUM
  19. LIDOCAINE/PRILOCAINE [Concomitant]
  20. FERROUS SULFATE [Concomitant]
     Active Substance: FERROUS SULFATE\FERROUS SULFATE, DRIED
  21. LIPITOR [Concomitant]
     Active Substance: ATORVASTATIN CALCIUM
  22. HIZENTRA [Suspect]
     Active Substance: HUMAN IMMUNOGLOBULIN G
     Indication: IMMUNODEFICIENCY COMMON VARIABLE
     Route: 058
  23. AVELOX [Concomitant]
     Active Substance: MOXIFLOXACIN HYDROCHLORIDE
  24. ASPIRIN. [Concomitant]
     Active Substance: ASPIRIN
  25. CALCIUM VITAMIN D [Concomitant]
     Active Substance: CALCIUM\VITAMIN D
  26. VENTOLIN [Concomitant]
     Active Substance: ALBUTEROL SULFATE
  27. PROMETHAZINE [Concomitant]
     Active Substance: PROMETHAZINE\PROMETHAZINE HYDROCHLORIDE
  28. METHOTREXATE [Concomitant]
     Active Substance: METHOTREXATE
  29. HYDROXYCHLOROQUINE [Concomitant]
     Active Substance: HYDROXYCHLOROQUINE

REACTIONS (1)
  - Hernia repair [Unknown]

NARRATIVE: CASE EVENT DATE: 20160224
